FAERS Safety Report 4438415-8 (Version None)
Quarter: 2004Q3

REPORT INFORMATION
  Report Type: 
  Country: None (occurrence: None)
  Receive Date: 20040827
  Receipt Date: 20040813
  Transmission Date: 20050211
  Serious: Yes (Other)
  Sender: FDA-Public Use
  Company Number: 237727

PATIENT
  Sex: Male
  Weight: 3.4 kg

DRUGS (21)
  1. NOVORAPID PENFILL 3 ML (INSULIN ASPART) SOLUTION FOR INJECTION, 100U/M [Suspect]
     Indication: DIABETES MELLITUS INSULIN-DEPENDENT
     Dosage: SEE IMAGE
     Route: 015
     Dates: start: 20031119, end: 20040616
  2. NOVORAPID PENFILL 3 ML (INSULIN ASPART) SOLUTION FOR INJECTION, 100U/M [Suspect]
     Indication: DIABETES MELLITUS INSULIN-DEPENDENT
     Dosage: SEE IMAGE
     Route: 015
     Dates: start: 20040617
  3. PROTAPHANE HM PENFILL (INSULIN HUMAN) SUSPENSION FOR INJECTION [Concomitant]
  4. CALCIUM GLUCONATE [Concomitant]
  5. PANANGIN (ASPARTATE POTASSIUM, MAGNESIUM ASPARTATE) [Concomitant]
  6. MAGNESIUM SULFATE [Concomitant]
  7. ASCORBIC ACID [Concomitant]
  8. VITAMIN B6 [Concomitant]
  9. ETAMSILATE (ETAMSILATE) [Concomitant]
  10. VITAMIN B1 TAB [Concomitant]
  11. PROCAINE (PROCAINE) [Concomitant]
  12. COCARBOXYLASE (COCARBOXYLASE) [Concomitant]
  13. PLASMA [Concomitant]
  14. PHENOBARBITAL TAB [Concomitant]
  15. ETHAMSYLATE (ETAMSILATE) [Concomitant]
  16. INTERFERON ALFA (INTERFERON ALFA) [Concomitant]
  17. CEFOTAXIME SODIUM [Concomitant]
  18. DEXAMETHASONE [Concomitant]
  19. CERUCAL (METOCLOPRAMIDE HYDROCHLORIDE) [Concomitant]
  20. LASIX [Concomitant]
  21. AMIKACIN [Concomitant]

REACTIONS (3)
  - APGAR SCORE LOW [None]
  - DRUG EXPOSURE DURING PREGNANCY [None]
  - HYPOGLYCAEMIA NEONATAL [None]
